FAERS Safety Report 4692410-2 (Version None)
Quarter: 2005Q2

REPORT INFORMATION
  Report Type: 
  Country: None (occurrence: None)
  Receive Date: 20050616
  Receipt Date: 20050613
  Transmission Date: 20051028
  Serious: Yes (Hospitalization)
  Sender: FDA-Public Use
  Company Number: 200510416BVD

PATIENT
  Sex: Male
  Weight: 78 kg

DRUGS (4)
  1. LEVITRA [Suspect]
     Dosage: 20 MG, TOTAL DAILY, ORAL
     Route: 048
  2. DICLAC [Concomitant]
  3. GELUSIL-LAC [Concomitant]
  4. CAPTOPRIL LONG [Concomitant]

REACTIONS (6)
  - AGGRESSION [None]
  - DISINHIBITION [None]
  - DISORIENTATION [None]
  - ENCEPHALITIS [None]
  - PSYCHOTIC DISORDER [None]
  - SEXUAL DYSFUNCTION [None]
